FAERS Safety Report 9683422 (Version 2)
Quarter: 2013Q4

REPORT INFORMATION
  Report Type: Spontaneous
  Country: GB (occurrence: GB)
  Receive Date: 20131112
  Receipt Date: 20131112
  Transmission Date: 20140711
  Serious: Yes (Other)
  Sender: FDA-Public Use
  Company Number: GB-PFIZER INC-2013319589

PATIENT
  Age: 38 Year
  Sex: Female

DRUGS (2)
  1. CABERGOLINE [Suspect]
     Indication: BLOOD PROLACTIN INCREASED
     Dosage: UNK
  2. CABERGOLINE [Suspect]
     Indication: PROLACTINOMA

REACTIONS (1)
  - Neutropenia [Unknown]
